FAERS Safety Report 8435406 (Version 4)
Quarter: 2012Q4

REPORT INFORMATION
  Report Type: 
  Country: US (occurrence: US)
  Receive Date: 20120301
  Receipt Date: 20121026
  Transmission Date: 20130627
  Serious: Yes (Death, Hospitalization)
  Sender: FDA-Public Use
  Company Number: US-GLAXOSMITHKLINE-A0968057A

PATIENT
  Age: 76 Year
  Sex: Female
  Weight: 106.8 kg

DRUGS (4)
  1. BUPROPION [Suspect]
     Indication: MENTAL DISORDER
     Dosage: 150MG Three times per day
     Route: 048
  2. ZYVOX [Suspect]
     Indication: STAPHYLOCOCCAL INFECTION
     Dosage: 600MG Twice per day
     Route: 048
     Dates: start: 20110718, end: 20110721
  3. CYMBALTA [Suspect]
     Indication: PRODUCT USED FOR UNKNOWN INDICATION
     Dosage: 60MG Per day
     Route: 065
  4. CONCURRENT MEDICATIONS [Concomitant]

REACTIONS (5)
  - Serotonin syndrome [Unknown]
  - Drug interaction [Fatal]
  - Pyrexia [Unknown]
  - Nervous system disorder [Unknown]
  - Pupillary disorder [Unknown]
